FAERS Safety Report 8881148 (Version 1)
Quarter: 2012Q4

REPORT INFORMATION
  Report Type: 
  Country: MX (occurrence: MX)
  Receive Date: 20121031
  Receipt Date: 20121031
  Transmission Date: 20130627
  Serious: Yes (Other)
  Sender: FDA-Public Use
  Company Number: MX-ROCHE-1150127

PATIENT
  Age: 19 Year
  Sex: Male

DRUGS (4)
  1. XOLAIR [Suspect]
     Indication: PRODUCT USED FOR UNKNOWN INDICATION
     Route: 065
     Dates: start: 201208
  2. XOLAIR [Suspect]
     Route: 065
     Dates: start: 201209
  3. XOLAIR [Suspect]
     Route: 065
     Dates: start: 20121003, end: 20121003
  4. METICORTEN [Concomitant]
     Dosage: 3 cycles
     Route: 065

REACTIONS (4)
  - Nodule [Unknown]
  - Lymphadenopathy [Unknown]
  - Breast enlargement [Unknown]
  - Eosinophilia [Unknown]
